FAERS Safety Report 16571688 (Version 2)
Quarter: 2019Q3

REPORT INFORMATION
  Report Type: Spontaneous
  Country: IT (occurrence: IT)
  Receive Date: 20190715
  Receipt Date: 20190726
  Transmission Date: 20191004
  Serious: Yes (Other)
  Sender: FDA-Public Use
  Company Number: IT-PFIZER INC-2019299691

PATIENT
  Age: 38 Year
  Sex: Female

DRUGS (3)
  1. FARLUTAL [Suspect]
     Active Substance: MEDROXYPROGESTERONE ACETATE
     Indication: AMENORRHOEA
     Dosage: UNK
     Route: 048
     Dates: start: 20180610, end: 20180617
  2. LASIX [Concomitant]
     Active Substance: FUROSEMIDE
     Dosage: 250 MG, UNK
     Route: 048
  3. LANSOX [Concomitant]
     Active Substance: LANSOPRAZOLE
     Dosage: 30 MG, UNK
     Route: 048

REACTIONS (3)
  - Menorrhagia [Recovering/Resolving]
  - Anaemia [Recovering/Resolving]
  - Vaginal haemorrhage [Recovering/Resolving]

NARRATIVE: CASE EVENT DATE: 20180617
